FAERS Safety Report 8586407 (Version 5)
Quarter: 2012Q4

REPORT INFORMATION
  Report Type: 
  Country: US (occurrence: US)
  Receive Date: 20120530
  Receipt Date: 20120830
  Transmission Date: 20130627
  Serious: Yes (Other)
  Sender: FDA-Public Use
  Company Number: US-PFIZER INC-2012127335

PATIENT
  Age: 62 Year
  Sex: Male
  Weight: 63.49 kg

DRUGS (7)
  1. CAVERJECT [Suspect]
     Indication: ERECTILE DYSFUNCTION
     Dosage: 20 ug, UNK
     Dates: start: 1996, end: 2000
  2. CAVERJECT [Suspect]
     Indication: ERECTILE DYSFUNCTION
     Dosage: 20 ug, as needed
     Dates: start: 2006
  3. CAVERJECT [Suspect]
     Indication: ERECTILE DYSFUNCTION
     Dosage: 20 ug, as needed
     Dates: start: 2010
  4. WELLBUTRIN [Concomitant]
     Indication: BIPOLAR I DISORDER
     Dosage: 150 mg, 2x/day
  5. WELLBUTRIN [Concomitant]
     Indication: BIPOLAR DISORDER
  6. LITHIUM [Concomitant]
     Indication: BIPOLAR I DISORDER
     Dosage: 300 mg, 3x/day
  7. LITHIUM [Concomitant]
     Indication: BIPOLAR DISORDER

REACTIONS (7)
  - Poor quality drug administered [Unknown]
  - Drug administered at inappropriate site [Unknown]
  - Penis disorder [Unknown]
  - Expired drug administered [Unknown]
  - Drug ineffective [Unknown]
  - Drug effect decreased [Unknown]
  - Erectile dysfunction [Unknown]
